FAERS Safety Report 19218590 (Version 6)
Quarter: 2021Q2

REPORT INFORMATION
  Report Type: Report from Study
  Country: KR (occurrence: KR)
  Receive Date: 20210505
  Receipt Date: 20210618
  Transmission Date: 20210717
  Serious: Yes (Hospitalization)
  Sender: FDA-Public Use
  Company Number: KR-ROCHE-2819018

PATIENT
  Age: 90 Year
  Sex: Male
  Weight: 60 kg

DRUGS (38)
  1. PORTALAC POWDER [Concomitant]
     Indication: CONSTIPATION
     Route: 048
     Dates: start: 20210425, end: 20210427
  2. TIRAGOLUMAB. [Suspect]
     Active Substance: TIRAGOLUMAB
     Indication: NON-SMALL CELL LUNG CANCER
     Dosage: START DATE OF MOST RECENT DOSE OF STUDY DRUG PRIOR TO AE: 02/DEC/2020.?START DATE OF MOST RECENT DOS
     Route: 042
     Dates: start: 20200819
  3. AMARYL [Concomitant]
     Active Substance: GLIMEPIRIDE
     Indication: TYPE 2 DIABETES MELLITUS
     Route: 048
     Dates: start: 2000
  4. SODIUM BICARBONATE. [Concomitant]
     Active Substance: SODIUM BICARBONATE
     Indication: OROPHARYNGEAL PAIN
     Route: 048
     Dates: start: 20210426, end: 20210516
  5. GLUPA [Concomitant]
     Active Substance: METFORMIN HYDROCHLORIDE
     Indication: TYPE 2 DIABETES MELLITUS
     Route: 048
     Dates: start: 20210423, end: 20210504
  6. AMCILLIN [Concomitant]
     Indication: MUCOSAL INFLAMMATION
     Route: 048
     Dates: start: 20210602
  7. TAZOLACTAM [Concomitant]
     Indication: INFECTION
     Route: 042
     Dates: start: 20210425, end: 20210426
  8. ATEZOLIZUMAB. [Suspect]
     Active Substance: ATEZOLIZUMAB
     Indication: NON-SMALL CELL LUNG CANCER
     Dosage: START DATE OF MOST RECENT DOSE OF STUDY DRUG PRIOR TO AE: 02/DEC/2020.?START DATE OF MOST RECENT DOS
     Route: 042
     Dates: start: 20200819
  9. CRESTOR [Concomitant]
     Active Substance: ROSUVASTATIN CALCIUM
     Indication: DYSLIPIDAEMIA
     Route: 048
     Dates: start: 2010
  10. MAGNESIUM OXIDE. [Concomitant]
     Active Substance: MAGNESIUM OXIDE
     Indication: CONSTIPATION
     Route: 048
     Dates: start: 20210203
  11. DULCOLAX?S [Concomitant]
     Indication: CONSTIPATION
     Route: 048
     Dates: start: 20210321
  12. DULCOLAX?S [Concomitant]
     Route: 054
     Dates: start: 20210317
  13. CRESTOR [Concomitant]
     Active Substance: ROSUVASTATIN CALCIUM
     Indication: DYSLIPIDAEMIA
     Route: 048
     Dates: start: 20210424, end: 20210504
  14. AMCILLIN [Concomitant]
     Indication: OROPHARYNGEAL PAIN
     Route: 048
     Dates: start: 20210423, end: 20210427
  15. LIDOCAINE. [Concomitant]
     Active Substance: LIDOCAINE
     Indication: MUCOSAL INFLAMMATION
     Route: 061
     Dates: start: 20210602
  16. DISTILLED WATER [Concomitant]
     Indication: MUCOSAL INFLAMMATION
     Route: 061
     Dates: start: 20210602
  17. BORYUNG BIO ASTRIX [Concomitant]
     Indication: ANGINA PECTORIS
     Route: 048
     Dates: start: 2010
  18. LAMINA?G [Concomitant]
     Indication: OESOPHAGITIS
     Route: 048
     Dates: start: 20210224, end: 20210428
  19. STOGAR [Concomitant]
     Active Substance: LAFUTIDINE
     Indication: OESOPHAGITIS
     Route: 048
     Dates: start: 20210407
  20. NEXIUM [Concomitant]
     Active Substance: ESOMEPRAZOLE MAGNESIUM
     Indication: OESOPHAGITIS
     Route: 042
     Dates: start: 20210425, end: 20210426
  21. DIFLUCAN [Concomitant]
     Active Substance: FLUCONAZOLE
     Indication: MUCOSAL INFLAMMATION
     Route: 048
     Dates: start: 20210602
  22. DEXAMETHASONE. [Concomitant]
     Active Substance: DEXAMETHASONE
     Indication: PREMEDICATION
     Route: 042
     Dates: start: 20200909
  23. DUPHALAC EASY [Concomitant]
     Active Substance: LACTULOSE
     Indication: PROPHYLAXIS
     Route: 048
     Dates: start: 20210113, end: 20210202
  24. DUPHALAC EASY [Concomitant]
     Active Substance: LACTULOSE
     Route: 048
     Dates: start: 20210203, end: 20210316
  25. GASTER (SOUTH KOREA) [Concomitant]
     Indication: GASTRITIS
     Route: 048
     Dates: start: 20210311, end: 20210325
  26. TANTUM [Concomitant]
     Active Substance: BENZYDAMINE HYDROCHLORIDE
     Indication: OROPHARYNGEAL PAIN
     Route: 048
     Dates: start: 20210327
  27. DERMOTASONE MLE [Concomitant]
     Indication: DERMATITIS ACNEIFORM
     Route: 061
     Dates: start: 20210311, end: 20210516
  28. DISTILLED WATER [Concomitant]
     Indication: OROPHARYNGEAL PAIN
     Route: 048
     Dates: start: 20210423, end: 20210427
  29. PERIDEX OINTMENT [Concomitant]
     Indication: STOMATITIS
     Route: 061
     Dates: start: 20210517
  30. MYPOL CAPSULES [Concomitant]
     Indication: STOMATITIS
     Dosage: 1 OTHER
     Route: 048
     Dates: start: 20210517
  31. CARDURA XL [Concomitant]
     Active Substance: DOXAZOSIN MESYLATE
     Indication: BENIGN PROSTATIC HYPERPLASIA
     Route: 048
     Dates: start: 2010
  32. KLENZO [Concomitant]
     Indication: OROPHARYNGEAL PAIN
     Route: 048
     Dates: start: 20210426, end: 20210516
  33. BUP?4 [Concomitant]
     Active Substance: PROPIVERINE
     Indication: BENIGN PROSTATIC HYPERPLASIA
     Route: 048
     Dates: start: 2010
  34. JANUVIA [Concomitant]
     Active Substance: SITAGLIPTIN PHOSPHATE
     Indication: TYPE 2 DIABETES MELLITUS
     Route: 048
     Dates: start: 20210424, end: 20210504
  35. PENIRAMIN [Concomitant]
     Indication: PREMEDICATION
     Route: 042
     Dates: start: 20200909, end: 20210112
  36. PORTALAC POWDER [Concomitant]
     Route: 048
     Dates: start: 20210428, end: 20210516
  37. NEXIUM [Concomitant]
     Active Substance: ESOMEPRAZOLE MAGNESIUM
     Route: 042
     Dates: start: 20210425, end: 20210426
  38. CRESTOR [Concomitant]
     Active Substance: ROSUVASTATIN CALCIUM
     Route: 048
     Dates: start: 20210424, end: 20210504

REACTIONS (1)
  - Dermatitis acneiform [Not Recovered/Not Resolved]

NARRATIVE: CASE EVENT DATE: 20201223
